FAERS Safety Report 4365292-6 (Version None)
Quarter: 2004Q2

REPORT INFORMATION
  Report Type: 
  Country: None (occurrence: None)
  Receive Date: 20040525
  Receipt Date: 20040224
  Transmission Date: 20050107
  Serious: No
  Sender: FDA-Public Use
  Company Number: PHEH2004US01599

PATIENT
  Age: 17 Year
  Sex: Female
  Weight: 55.8 kg

DRUGS (2)
  1. ZELNORM [Suspect]
     Indication: IRRITABLE BOWEL SYNDROME
     Dosage: 6 MG, BID, ORAL
     Route: 048
     Dates: start: 20040201, end: 20040203
  2. MULTI-VITAMINS [Concomitant]

REACTIONS (4)
  - DELUSIONAL PERCEPTION [None]
  - EUPHORIC MOOD [None]
  - FEELING ABNORMAL [None]
  - HUNGER [None]
